FAERS Safety Report 10042530 (Version 3)
Quarter: 2014Q2

REPORT INFORMATION
  Report Type: Spontaneous
  Country: US (occurrence: None)
  Receive Date: 20140325
  Receipt Date: 20140411
  Transmission Date: 20141212
  Serious: Yes (Hospitalization, Other)
  Sender: FDA-Public Use
  Company Number: AUR-APL-2014-03821

PATIENT
  Age: 59 Year
  Sex: 0
  Weight: 192 kg

DRUGS (7)
  1. CLOPIDOGREL [Suspect]
     Indication: PRODUCT USED FOR UNKNOWN INDICATION
  2. ASPIRIN [Suspect]
     Indication: PRODUCT USED FOR UNKNOWN INDICATION
  3. INSULIN GLARGINE (INSULIN GLARGINE) [Concomitant]
  4. LISINOPRIL (LISINOPRIL) [Concomitant]
  5. GLYBURIDE (GLIBENCLAMIDE) [Concomitant]
  6. LISPRO INSULIN (INSULIN LISPRO) [Concomitant]
  7. ROSUVASTATIN (ROSUVASTATIN) [Concomitant]

REACTIONS (3)
  - Ischaemic stroke [None]
  - Drug effect incomplete [None]
  - Arterial thrombosis [None]
